FAERS Safety Report 7624497-9 (Version None)
Quarter: 2011Q3

REPORT INFORMATION
  Report Type: 
  Country: None (occurrence: None)
  Receive Date: 20110720
  Receipt Date: 20110707
  Transmission Date: 20111222
  Serious: Yes (Death)
  Sender: FDA-Public Use
  Company Number: US-PFIZER INC-2010001167

PATIENT
  Age: 33 Year
  Sex: Female

DRUGS (7)
  1. SILDENAFIL CITRATE [Suspect]
     Dosage: UNK
     Route: 048
     Dates: end: 20080101
  2. PIOGLITAZONE HYDROCHLORIDE [Suspect]
     Dosage: UNK
     Route: 048
     Dates: end: 20080101
  3. SIMVASTATIN [Suspect]
     Dosage: UNK
     Route: 048
     Dates: end: 20080101
  4. DIPHENHYDRAMINE HCL [Suspect]
     Dosage: UNK
     Route: 048
     Dates: end: 20080101
  5. SITAGLIPTIN [Suspect]
     Dosage: UNK
     Route: 048
     Dates: end: 20080101
  6. VALSARTAN [Suspect]
     Dosage: UNK
     Route: 048
     Dates: end: 20080101
  7. METFORMIN HCL [Suspect]
     Dosage: UNK
     Route: 048
     Dates: end: 20080101

REACTIONS (1)
  - COMPLETED SUICIDE [None]
